FAERS Safety Report 9886879 (Version 2)
Quarter: 2014Q2

REPORT INFORMATION
  Report Type: Spontaneous
  Country: US (occurrence: US)
  Receive Date: 20140210
  Receipt Date: 20140416
  Transmission Date: 20141212
  Serious: Yes (Other)
  Sender: FDA-Public Use
  Company Number: US-ABBVIE-14P-163-1198923-00

PATIENT
  Age: 29 Year
  Sex: Female
  Weight: 89.44 kg

DRUGS (6)
  1. LUPRON DEPOT [Suspect]
     Indication: ENDOMETRIOSIS
     Dates: start: 2000, end: 2000
  2. LUPRON DEPOT [Suspect]
     Dates: start: 2003, end: 2003
  3. LUPRON DEPOT [Suspect]
     Dates: start: 200410, end: 200410
  4. UNKNOWN ORAL CONTRACEPTIVE [Concomitant]
     Indication: ASSISTED FERTILISATION
     Dates: start: 2005, end: 2005
  5. CLOMID [Concomitant]
     Indication: INFERTILITY
  6. LUPRON DEPOT-3 MONTH [Concomitant]
     Indication: ENDOMETRIOSIS
     Dates: start: 20140222, end: 20140222

REACTIONS (1)
  - Abortion spontaneous [Unknown]
